FAERS Safety Report 15326579 (Version 1)
Quarter: 2018Q3

REPORT INFORMATION
  Report Type: Not Available
  Country: US (occurrence: US)
  Receive Date: 20180828
  Receipt Date: 20180828
  Transmission Date: 20181010
  Serious: Yes (Life-Threatening, Hospitalization, Other)
  Sender: FDA-Public Use
  Company Number: US-C B FLEET CO INC-201808-US-001829

PATIENT
  Sex: Male

DRUGS (1)
  1. BC (ASPIRIN\CAFFEINE) [Suspect]
     Active Substance: ASPIRIN\CAFFEINE
     Indication: PAIN
     Dosage: AT LEAST 4 PACKS PER DAY
     Route: 048

REACTIONS (7)
  - Incorrect drug administration duration [None]
  - Product use in unapproved indication [None]
  - Asthenia [Recovered/Resolved]
  - Gastric haemorrhage [Recovered/Resolved]
  - Haematemesis [Recovered/Resolved]
  - Inappropriate schedule of drug administration [None]
  - Gastric ulcer [Recovered/Resolved]

NARRATIVE: CASE EVENT DATE: 2012
